FAERS Safety Report 9024990 (Version 2)
Quarter: 2013Q4

REPORT INFORMATION
  Report Type: Spontaneous
  Country: US (occurrence: US)
  Receive Date: 20130121
  Receipt Date: 20131212
  Transmission Date: 20140711
  Serious: Yes (Other)
  Sender: FDA-Public Use
  Company Number: US-BAYER-2013-007082

PATIENT
  Age: 22 Year
  Sex: Female

DRUGS (8)
  1. YAZ [Suspect]
     Dosage: UNK
     Dates: start: 200705
  2. YASMIN [Suspect]
     Dosage: UNK
     Dates: start: 200705
  3. NEXIUM [Concomitant]
     Dosage: UNK
     Dates: start: 20100121
  4. REGLAN [Concomitant]
     Dosage: UNK
     Dates: start: 20100121
  5. MIDRIN [Concomitant]
     Dosage: UNK
     Dates: start: 20100121
  6. ORTHO TRI-CYCLEN LO [Concomitant]
  7. PROPRANOLOL [Concomitant]
  8. MOBIC [Concomitant]

REACTIONS (7)
  - Gallbladder injury [None]
  - Cholecystitis chronic [None]
  - Biliary dyskinesia [None]
  - Pain [None]
  - Fear of disease [None]
  - Injury [None]
  - Pain [None]
